FAERS Safety Report 12757895 (Version 3)
Quarter: 2017Q1

REPORT INFORMATION
  Report Type: Spontaneous
  Country: US (occurrence: US)
  Receive Date: 20160919
  Receipt Date: 20170111
  Transmission Date: 20170428
  Serious: No
  Sender: FDA-Public Use
  Company Number: US-PFIZER INC-2016431859

PATIENT
  Age: 70 Year
  Sex: Male
  Weight: 93.44 kg

DRUGS (9)
  1. HYDROCODON-ACETAMINOPHN [Concomitant]
     Indication: MUSCULOSKELETAL PAIN
  2. HYDROCODON-ACETAMINOPHN [Concomitant]
     Indication: NECK PAIN
     Dosage: [HYDROCODONE 10]/[ ACETAMINOPHN 32.5], TWICE A DAY
     Route: 048
     Dates: end: 201606
  3. NORVASC [Concomitant]
     Active Substance: AMLODIPINE BESYLATE
     Dosage: UNK
  4. HYDRALAZINE [Concomitant]
     Active Substance: HYDRALAZINE HYDROCHLORIDE
     Dosage: UNK
  5. SYNTHROID [Concomitant]
     Active Substance: LEVOTHYROXINE SODIUM
     Dosage: UNK
  6. ALLOPURINOL. [Concomitant]
     Active Substance: ALLOPURINOL
  7. LYRICA [Suspect]
     Active Substance: PREGABALIN
     Indication: NEUROPATHY PERIPHERAL
     Dosage: 100 MG, 2X/DAY
     Route: 048
     Dates: start: 20160105, end: 20160912
  8. LYRICA [Suspect]
     Active Substance: PREGABALIN
     Indication: PAIN
     Dosage: UNK
     Dates: end: 201606
  9. HYDROCODONE [Concomitant]
     Active Substance: HYDROCODONE
     Dosage: UNK

REACTIONS (3)
  - Swelling face [Recovering/Resolving]
  - Sleep disorder [Unknown]
  - Pain in jaw [Not Recovered/Not Resolved]

NARRATIVE: CASE EVENT DATE: 20160908
